FAERS Safety Report 5711035-0 (Version None)
Quarter: 2008Q2

REPORT INFORMATION
  Report Type: 
  Country: None (occurrence: None)
  Receive Date: 20080421
  Receipt Date: 20080408
  Transmission Date: 20081010
  Serious: Yes (Hospitalization, Other)
  Sender: FDA-Public Use
  Company Number: US-ROCHE-557586

PATIENT
  Sex: Male
  Weight: 72.6 kg

DRUGS (64)
  1. VALIUM [Suspect]
     Indication: DRUG USE FOR UNKNOWN INDICATION
     Route: 065
     Dates: start: 20050811
  2. VALIUM [Suspect]
     Dosage: FREQUENCY: ONCE, ROUTE: ORAL
     Route: 065
     Dates: start: 20061217, end: 20061217
  3. FENTANYL CITRATE [Suspect]
     Indication: SURGICAL FAILURE
     Dosage: DRUG REPORTED AS ^FENTORA (FENTANYL BUCCAL TABLET)
     Route: 002
     Dates: start: 20061106, end: 20061211
  4. ACTIQ [Suspect]
     Indication: SURGICAL FAILURE
     Dosage: SPARINGLY. ROUTE:BUCCAL
     Route: 002
     Dates: start: 20020917, end: 20030401
  5. ACTIQ [Suspect]
     Dosage: FREQUENCY: EVERY 4-6 HOURS PRN.ROUTE:BUCCAL
     Route: 002
     Dates: start: 20030401, end: 20030601
  6. ACTIQ [Suspect]
     Dosage: FREQUENCY: EVERY 4-6 HOURS PRN.ROUTE:BUCCAL
     Route: 002
     Dates: start: 20030601, end: 20031212
  7. ACTIQ [Suspect]
     Dosage: FREQUENCY: EVERY 6 HOURS PRN.ROUTE:BUCCAL
     Route: 002
     Dates: start: 20031212, end: 20040501
  8. ACTIQ [Suspect]
     Dosage: DOSE: ONE
     Route: 002
     Dates: start: 20040601, end: 20040801
  9. ACTIQ [Suspect]
     Dosage: FREQUENCY: OCCASIONAL , ROUTE: BUCCAL. DURATION: A FEW MONTHS.
     Route: 002
     Dates: end: 20050609
  10. ACTIQ [Suspect]
     Dosage: ROUTE:BUCCAL
     Route: 002
     Dates: start: 20050609, end: 20050901
  11. ACTIQ [Suspect]
     Dosage: ROUTE:BUCCAL
     Route: 002
     Dates: start: 20050901, end: 20051004
  12. ACTIQ [Suspect]
     Dosage: ROUTE:BUCCAL
     Route: 002
     Dates: start: 20051004, end: 20051215
  13. ACTIQ [Suspect]
     Dosage: 1200 MCG AND 800 MCG AS DIRECTED. ROUTE: BUCCAL
     Route: 002
     Dates: start: 20051215, end: 20060103
  14. ACTIQ [Suspect]
     Dosage: 1200 MCG AND 800 MCG AS DIRECTED. ROUTE: BUCCAL
     Route: 002
     Dates: start: 20060103, end: 20060301
  15. ACTIQ [Suspect]
     Dosage: FREQUENCY: MAXIMUM: 5 DAY, ROUTE: BUCCAL
     Route: 002
     Dates: start: 20060301, end: 20060530
  16. ACTIQ [Suspect]
     Dosage: ROUTE:BUCCAL
     Route: 002
     Dates: start: 20060530, end: 20060906
  17. ACTIQ [Suspect]
     Dosage: ROUTE:BUCCAL
     Route: 002
     Dates: start: 20060906, end: 20061106
  18. ACTIQ [Suspect]
     Dosage: ROUTE:BUCCAL
     Route: 002
     Dates: start: 20061211, end: 20061217
  19. ACTIQ [Suspect]
     Dosage: ROUTE:BUCCAL
     Route: 002
     Dates: start: 20061220, end: 20070112
  20. ACTIQ [Suspect]
     Dosage: ROUTE:BUCCAL
     Route: 002
     Dates: start: 20070112, end: 20070119
  21. DURAGESIC-100 [Suspect]
     Indication: SURGICAL FAILURE
     Route: 062
     Dates: start: 20021121, end: 20030421
  22. DURAGESIC-100 [Suspect]
     Route: 062
     Dates: start: 20030421, end: 20031212
  23. DURAGESIC-100 [Suspect]
     Route: 062
     Dates: start: 20031212, end: 20040513
  24. DURAGESIC-100 [Suspect]
     Route: 062
     Dates: start: 20041115, end: 20050609
  25. DURAGESIC-100 [Suspect]
     Route: 062
     Dates: end: 20060323
  26. DURAGESIC-100 [Suspect]
     Route: 062
     Dates: start: 20060323, end: 20070119
  27. DILAUDID [Suspect]
     Indication: POST LAMINECTOMY SYNDROME
     Route: 065
     Dates: start: 20051103, end: 20061216
  28. DILAUDID [Suspect]
     Dosage: FREQUENCY:ONCE, ROUTE:ORAL
     Route: 065
     Dates: start: 20061217, end: 20061217
  29. AVINZA [Suspect]
     Indication: SURGICAL FAILURE
     Route: 065
     Dates: start: 20061106
  30. ARAVA [Concomitant]
  31. LEXAPRO [Concomitant]
  32. LIPITOR [Concomitant]
  33. ZELNORM [Concomitant]
  34. NEXIUM [Concomitant]
  35. ATENOLOL [Concomitant]
  36. FOSAMAX [Concomitant]
  37. XANAX [Concomitant]
  38. LIDODERM [Concomitant]
  39. ZOLOFT [Concomitant]
  40. NEURONTIN [Concomitant]
     Dates: end: 20040801
  41. TOPAMAX [Concomitant]
     Dates: start: 20020214
  42. NORCO [Concomitant]
     Dates: start: 20020201
  43. NORCO [Concomitant]
     Dates: start: 20020201
  44. KEPPRA [Concomitant]
     Dates: start: 20020917, end: 20030324
  45. KEPPRA [Concomitant]
     Dates: start: 20030101, end: 20040801
  46. CELEBREX [Concomitant]
  47. BEXTRA [Concomitant]
     Dates: start: 20020917
  48. BEXTRA [Concomitant]
     Dates: end: 20041115
  49. VIOXX [Concomitant]
     Dates: start: 20020917
  50. LORAZEPAM [Concomitant]
  51. HYDROCODONE BITARTRATE [Concomitant]
  52. SCOPOLAMINE [Concomitant]
     Dates: start: 20030324
  53. CLONIDINE HCL [Concomitant]
     Dates: start: 20040513
  54. GABITRIL [Concomitant]
     Dates: start: 20040824
  55. PROVIGIL [Concomitant]
     Dates: start: 20040824
  56. AMBIEN [Concomitant]
  57. FLOMAX [Concomitant]
  58. FLOMAX [Concomitant]
  59. MOBIC [Concomitant]
  60. RESTORIL [Concomitant]
  61. PLAQUENIL [Concomitant]
  62. METHYLPREDNISOLONE [Concomitant]
  63. LUNESTA [Concomitant]
     Dates: start: 20050408
  64. ALLEGRA [Concomitant]

REACTIONS (16)
  - ANGER [None]
  - ARACHNOIDITIS [None]
  - ASTHENIA [None]
  - BACK PAIN [None]
  - DENTAL CARIES [None]
  - DRUG DEPENDENCE [None]
  - DRUG WITHDRAWAL SYNDROME [None]
  - DYSTHYMIC DISORDER [None]
  - MEMORY IMPAIRMENT [None]
  - NAUSEA [None]
  - OVERDOSE [None]
  - PARANOIA [None]
  - PHYSICAL DISABILITY [None]
  - SACROILIITIS [None]
  - SEDATION [None]
  - SUICIDAL IDEATION [None]
